FAERS Safety Report 10442712 (Version 2)
Quarter: 2014Q3

REPORT INFORMATION
  Report Type: Spontaneous
  Country: JP (occurrence: JP)
  Receive Date: 20140909
  Receipt Date: 20140909
  Transmission Date: 20150326
  Serious: Yes (Other)
  Sender: FDA-Public Use
  Company Number: PHHY2014JP106279

PATIENT
  Age: 9 Year
  Sex: Male

DRUGS (3)
  1. ALEVIATIN [Suspect]
     Active Substance: PHENYTOIN SODIUM
     Route: 048
  2. AFINITOR [Suspect]
     Active Substance: EVEROLIMUS
     Indication: TUBEROUS SCLEROSIS
     Dosage: 10 MG, DAILY
     Route: 048
     Dates: start: 20130713
  3. ALEVIATIN [Suspect]
     Active Substance: PHENYTOIN SODIUM
     Route: 048

REACTIONS (2)
  - Purpura [Recovered/Resolved]
  - Epilepsy [Recovered/Resolved]

NARRATIVE: CASE EVENT DATE: 201408
